FAERS Safety Report 4496332-1 (Version None)
Quarter: 2004Q4

REPORT INFORMATION
  Report Type: 
  Country: None (occurrence: None)
  Receive Date: 20041109
  Receipt Date: 19950608
  Transmission Date: 20050328
  Serious: Yes (Congenital Anomaly)
  Sender: FDA-Public Use
  Company Number: JP-ABBOTT-95P-087-0062351-00

PATIENT
  Sex: Female
  Weight: 2.83 kg

DRUGS (1)
  1. VALPROIC ACID [Suspect]
     Indication: DRUG EXPOSURE DURING PREGNANCY

REACTIONS (13)
  - BRAIN MALFORMATION [None]
  - CLEFT PALATE [None]
  - CONGENITAL ANOMALY [None]
  - CONGENITAL NOSE MALFORMATION [None]
  - CONGENITAL ORAL MALFORMATION [None]
  - DEVELOPMENTAL DELAY [None]
  - DRUG EXPOSURE DURING PREGNANCY [None]
  - FACIAL DYSMORPHISM [None]
  - GROWTH RETARDATION [None]
  - HAEMANGIOMA CONGENITAL [None]
  - HYPERTELORISM OF ORBIT [None]
  - LIMB HYPOPLASIA CONGENITAL [None]
  - LOW SET EARS [None]
